FAERS Safety Report 6089657-X (Version None)
Quarter: 2009Q1

REPORT INFORMATION
  Report Type: 
  Country: None (occurrence: None)
  Receive Date: 20090224
  Receipt Date: 20090220
  Transmission Date: 20090719
  Serious: No
  Sender: FDA-Public Use
  Company Number: US-B.I. PHARMACEUTICALS,INC./RIDGEFIELD-2009-BP-01710BP

PATIENT
  Sex: Female

DRUGS (12)
  1. SPIRIVA [Suspect]
     Indication: ASTHMA
     Dosage: 18MCG
     Route: 055
     Dates: start: 20081108
  2. ADVAIR HFA [Concomitant]
     Indication: ASTHMA
     Route: 055
     Dates: start: 20080901, end: 20081101
  3. SYMBICORT [Concomitant]
     Indication: ASTHMA
     Route: 055
     Dates: start: 20081101
  4. PROAIR HFA [Concomitant]
     Indication: ASTHMA
     Route: 055
     Dates: start: 20080901, end: 20081101
  5. NEXIUM [Concomitant]
     Indication: GASTROOESOPHAGEAL REFLUX DISEASE
     Route: 048
     Dates: start: 20080812
  6. PREVACID [Concomitant]
     Indication: GASTROOESOPHAGEAL REFLUX DISEASE
     Route: 048
     Dates: start: 20030101, end: 20080812
  7. SIMVASTATIN [Concomitant]
     Indication: BLOOD CHOLESTEROL INCREASED
  8. LOVAZA [Concomitant]
     Indication: BLOOD CHOLESTEROL INCREASED
  9. ZETIA [Concomitant]
     Indication: BLOOD CHOLESTEROL INCREASED
  10. IBUPROFEN TABLETS [Concomitant]
     Indication: HEADACHE
     Route: 048
  11. DARVOCET-N 100 [Concomitant]
     Indication: BACK PAIN
     Route: 048
  12. VALIUM [Concomitant]
     Indication: DYSKINESIA
     Route: 048

REACTIONS (4)
  - COUGH [None]
  - DRY MOUTH [None]
  - DYSPHONIA [None]
  - HAEMATOMA [None]
